FAERS Safety Report 12413897 (Version 4)
Quarter: 2017Q1

REPORT INFORMATION
  Report Type: Report from Study
  Country: FR (occurrence: FR)
  Receive Date: 20160527
  Receipt Date: 20170213
  Transmission Date: 20170428
  Serious: Yes (Hospitalization)
  Sender: FDA-Public Use
  Company Number: FR-ROCHE-1660182

PATIENT
  Age: 50 Year
  Sex: Female
  Weight: 56 kg

DRUGS (21)
  1. GAVISCON (ALGINIC ACID) [Concomitant]
     Indication: DYSPEPSIA
     Route: 048
     Dates: start: 2013
  2. VANCOMYCIN [Concomitant]
     Active Substance: VANCOMYCIN
     Indication: PYELONEPHRITIS
     Route: 065
     Dates: start: 20160909, end: 20160922
  3. AUGMENTIN [Concomitant]
     Active Substance: AMOXICILLIN\CLAVULANATE POTASSIUM
     Indication: PHARYNGITIS
  4. SPAGULAX [Concomitant]
     Active Substance: PLANTAGO OVATA SEED
     Indication: CONSTIPATION
     Route: 048
     Dates: start: 20160531
  5. CYSTINE B6 [Concomitant]
     Indication: ALOPECIA
     Route: 048
     Dates: start: 20160609
  6. INNOHEP [Concomitant]
     Active Substance: TINZAPARIN SODIUM
     Route: 058
     Dates: start: 20160224
  7. CIFLOX (FRANCE) [Concomitant]
     Active Substance: CIPROFLOXACIN
     Indication: URINARY TRACT INFECTION
     Route: 048
     Dates: start: 20160310, end: 20160316
  8. ATEZOLIZUMAB [Suspect]
     Active Substance: ATEZOLIZUMAB
     Indication: BLADDER TRANSITIONAL CELL CARCINOMA METASTATIC
     Dosage: MOST RECENT DOSE PRIOR TO EVENT: 21/OCT/2015?MOST RECENT DOSE PRIOR TO FUNCTIONAL COLOPATHY: 04/FEB/
     Route: 042
     Dates: start: 20150415
  9. EFFEXOR [Concomitant]
     Active Substance: VENLAFAXINE HYDROCHLORIDE
     Indication: DEPRESSION
     Route: 048
     Dates: start: 201209
  10. UVEDOSE [Concomitant]
     Active Substance: CHOLECALCIFEROL
     Indication: VITAMIN D DECREASED
     Route: 048
     Dates: start: 20151115
  11. INEXIUM [Concomitant]
     Active Substance: ESOMEPRAZOLE
     Indication: DYSPEPSIA
     Route: 048
     Dates: start: 2006, end: 20150512
  12. INEXIUM [Concomitant]
     Active Substance: ESOMEPRAZOLE
     Dosage: EVERY DAY
     Route: 048
     Dates: start: 201506
  13. DIFFU K [Concomitant]
     Active Substance: POTASSIUM CHLORIDE
     Indication: HYPOKALAEMIA
     Route: 048
     Dates: start: 201604
  14. CIFLOX (FRANCE) [Concomitant]
     Active Substance: CIPROFLOXACIN
     Indication: PYELONEPHRITIS ACUTE
     Route: 048
     Dates: start: 20160811, end: 20160821
  15. BEFIZAL [Concomitant]
     Active Substance: BEZAFIBRATE
     Indication: HYPERCHOLESTEROLAEMIA
     Route: 048
     Dates: start: 2012, end: 201511
  16. BEFIZAL [Concomitant]
     Active Substance: BEZAFIBRATE
     Indication: HYPERCHOLESTEROLAEMIA
     Route: 048
     Dates: start: 201511
  17. TRANXENE T-TAB [Concomitant]
     Active Substance: CLORAZEPATE DIPOTASSIUM
     Indication: DEPRESSION
     Route: 048
     Dates: start: 201202
  18. AUGMENTIN [Concomitant]
     Active Substance: AMOXICILLIN\CLAVULANATE POTASSIUM
     Indication: ANGINA PECTORIS
     Route: 048
     Dates: start: 20150519, end: 20150526
  19. CODEIN [Suspect]
     Active Substance: CODEINE
     Indication: BACK PAIN
     Route: 048
     Dates: start: 201605, end: 201605
  20. INNOHEP [Concomitant]
     Active Substance: TINZAPARIN SODIUM
     Indication: DEEP VEIN THROMBOSIS
     Dosage: EVERY DAY
     Route: 058
     Dates: start: 201402, end: 20160224
  21. GLYCERINE [Concomitant]
     Active Substance: GLYCERIN
     Indication: CONSTIPATION
     Route: 054
     Dates: start: 2009

REACTIONS (6)
  - Subileus [Recovered/Resolved]
  - Subileus [Recovered/Resolved]
  - Abdominal pain [Recovered/Resolved]
  - Escherichia pyelonephritis [Recovered/Resolved]
  - Gastrointestinal disorder [Recovered/Resolved]
  - Enteritis [Recovered/Resolved]

NARRATIVE: CASE EVENT DATE: 20150608
